FAERS Safety Report 13236387 (Version 2)
Quarter: 2017Q2

REPORT INFORMATION
  Report Type: Spontaneous
  Country: FR (occurrence: FR)
  Receive Date: 20170215
  Receipt Date: 20170626
  Transmission Date: 20170830
  Serious: Yes (Other)
  Sender: FDA-Public Use
  Company Number: FR-SA-2017SA023774

PATIENT
  Age: 66 Year
  Sex: Male

DRUGS (8)
  1. CARDIOCOR [Concomitant]
     Route: 048
     Dates: start: 201606, end: 201609
  2. KARDEGIC [Concomitant]
     Active Substance: ASPIRIN LYSINE
     Route: 065
  3. INEXIUM [Concomitant]
     Active Substance: ESOMEPRAZOLE
     Route: 048
  4. ASPIRIN PROTECT [Concomitant]
     Active Substance: ASPIRIN
     Route: 065
     Dates: start: 201606
  5. PERINDOPRIL [Concomitant]
     Active Substance: PERINDOPRIL
  6. INEXIUM [Concomitant]
     Active Substance: ESOMEPRAZOLE
     Dosage: FORM: GASTRO-RESISTANT TABLET
     Route: 048
     Dates: start: 201606
  7. PLAVIX [Suspect]
     Active Substance: CLOPIDOGREL BISULFATE
     Indication: ACUTE CORONARY SYNDROME
     Dosage: DOSE: 1 DF, 1 DAY
     Route: 048
     Dates: start: 201606
  8. PLAVIX [Suspect]
     Active Substance: CLOPIDOGREL BISULFATE
     Indication: ACUTE CORONARY SYNDROME
     Dosage: DOSE: 1 DF, 1 DAY (LOADING DOSE 600 MG AND THEN 75 MG/DAY)
     Route: 048
     Dates: start: 20161221, end: 20170118

REACTIONS (2)
  - Anaemia [Recovered/Resolved]
  - Leukopenia [Recovered/Resolved]

NARRATIVE: CASE EVENT DATE: 20161117
